FAERS Safety Report 5509566-1 (Version None)
Quarter: 2007Q4

REPORT INFORMATION
  Report Type: 
  Country: None (occurrence: None)
  Receive Date: 20071106
  Receipt Date: 20071022
  Transmission Date: 20080405
  Serious: Yes (Other)
  Sender: FDA-Public Use
  Company Number: 100#03#2007-04243

PATIENT
  Age: 45 Year
  Sex: Female

DRUGS (5)
  1. ERYTHROMYCIN [Suspect]
     Indication: LOWER RESPIRATORY TRACT INFECTION
     Dosage: 250MG, FOUR TIMES DAILY, ORAL
     Route: 048
     Dates: start: 20060609, end: 20060616
  2. ONE-ALPHA (ALFACALCIDOL) (ALFACALCIDOL) [Suspect]
     Indication: HYPOPARATHYROIDISM
     Dosage: 1UG, THREE TIMES DAILY
     Dates: start: 19790101
  3. CALCIUM MAGNESIUM [Concomitant]
  4. CITRATE (CALCIUM W/MAGNESIUM) (CALCIUM MAGNESIUM CITRATE) [Concomitant]
  5. ZITHROMAX [Suspect]
     Indication: LOWER RESPIRATORY TRACT INFECTION
     Dosage: 500MG  ONCE DAILY
     Route: 048
     Dates: start: 20060616, end: 20060619

REACTIONS (1)
  - HYPOCALCAEMIA [None]
